FAERS Safety Report 12437194 (Version 2)
Quarter: 2016Q2

REPORT INFORMATION
  Report Type: Report from Study
  Country: US (occurrence: US)
  Receive Date: 20160606
  Receipt Date: 20160616
  Transmission Date: 20160815
  Serious: No
  Sender: FDA-Public Use
  Company Number: US-AMGEN-USASL2016071216

PATIENT
  Age: 60 Year
  Sex: Female

DRUGS (2)
  1. PREDNISONE. [Concomitant]
     Active Substance: PREDNISONE
     Dosage: UNK
  2. ENBREL [Suspect]
     Active Substance: ETANERCEPT
     Indication: RHEUMATOID ARTHRITIS
     Dosage: UNK UNK, QWK
     Route: 065
     Dates: start: 20160526

REACTIONS (3)
  - Dyspepsia [Recovering/Resolving]
  - Injection site rash [Not Recovered/Not Resolved]
  - Decreased appetite [Not Recovered/Not Resolved]

NARRATIVE: CASE EVENT DATE: 2016
